FAERS Safety Report 19415368 (Version 1)
Quarter: 2021Q2

REPORT INFORMATION
  Report Type: Spontaneous
  Country: US (occurrence: US)
  Receive Date: 20210615
  Receipt Date: 20210615
  Transmission Date: 20210717
  Serious: No
  Sender: FDA-Public Use
  Company Number: US-ALLERGAN-2114991US

PATIENT
  Age: 39 Year
  Sex: Female

DRUGS (2)
  1. KYBELLA [Suspect]
     Active Substance: DEOXYCHOLIC ACID
     Indication: PRODUCT USED FOR UNKNOWN INDICATION
     Dosage: UNK UNK, SINGLE
     Dates: start: 20210311, end: 20210311
  2. ZYRTEC [Concomitant]
     Active Substance: CETIRIZINE HYDROCHLORIDE
     Indication: HYPERSENSITIVITY

REACTIONS (5)
  - Temporomandibular joint syndrome [Unknown]
  - Muscle tightness [Not Recovered/Not Resolved]
  - Wrong technique in product usage process [Unknown]
  - Pain in jaw [Unknown]
  - Nerve injury [Unknown]

NARRATIVE: CASE EVENT DATE: 20210326
